FAERS Safety Report 13561443 (Version 1)
Quarter: 2017Q2

REPORT INFORMATION
  Report Type: Report from Study
  Country: US (occurrence: US)
  Receive Date: 20170518
  Receipt Date: 20170518
  Transmission Date: 20170830
  Serious: Yes (Other)
  Sender: FDA-Public Use
  Company Number: US-ENDO PHARMACEUTICALS INC-2017-002877

PATIENT
  Sex: Male
  Weight: 78.91 kg

DRUGS (6)
  1. XIAFLEX [Suspect]
     Active Substance: COLLAGENASE CLOSTRIDIUM HISTOLYTICUM
     Dosage: UNK, SECOND INJECTION, SECOND CYCLE
     Route: 026
  2. XIAFLEX [Suspect]
     Active Substance: COLLAGENASE CLOSTRIDIUM HISTOLYTICUM
     Dosage: UNK, FIRST INJECTION, THIRD CYCLE
     Route: 026
     Dates: start: 2017
  3. XIAFLEX [Suspect]
     Active Substance: COLLAGENASE CLOSTRIDIUM HISTOLYTICUM
     Dosage: UNK, FIRST INJECTION, SECOND CYCLE
     Route: 026
  4. XIAFLEX [Suspect]
     Active Substance: COLLAGENASE CLOSTRIDIUM HISTOLYTICUM
     Dosage: UNK, FIRST INJECTION, FIRST CYCLE
     Route: 026
  5. XIAFLEX [Suspect]
     Active Substance: COLLAGENASE CLOSTRIDIUM HISTOLYTICUM
     Indication: PEYRONIE^S DISEASE
     Dosage: UNK, SECOND INJECTION, THIRD CYCLE
     Route: 026
     Dates: start: 201704
  6. XIAFLEX [Suspect]
     Active Substance: COLLAGENASE CLOSTRIDIUM HISTOLYTICUM
     Dosage: UNK, SECOND INJECTION, FIRST CYCLE
     Route: 026

REACTIONS (2)
  - Corpora cavernosa surgery [Recovering/Resolving]
  - Fracture of penis [Recovering/Resolving]

NARRATIVE: CASE EVENT DATE: 2017
